FAERS Safety Report 21023764 (Version 1)
Quarter: 2022Q2

REPORT INFORMATION
  Report Type: Report from Study
  Country: CA (occurrence: CA)
  Receive Date: 20220629
  Receipt Date: 20220629
  Transmission Date: 20220721
  Serious: Yes (Other)
  Sender: FDA-Public Use
  Company Number: CA-TAKEDA-2022TUS043507

PATIENT
  Age: 72 Year
  Sex: Male

DRUGS (4)
  1. VEDOLIZUMAB [Suspect]
     Active Substance: VEDOLIZUMAB
     Indication: Colitis ulcerative
     Dosage: 300 MILLIGRAM
     Route: 042
     Dates: start: 20210506
  2. MESALAMINE [Concomitant]
     Active Substance: MESALAMINE
     Dosage: 1.2 GRAM, QD
     Dates: start: 2015
  3. Cortiment [Concomitant]
     Dosage: UNK
     Dates: start: 202102
  4. Salofalk [Concomitant]
     Dosage: 2 GRAM
     Dates: start: 202102

REACTIONS (1)
  - Colitis ulcerative [Unknown]
